FAERS Safety Report 9253656 (Version 2)
Quarter: 2013Q3

REPORT INFORMATION
  Report Type: Spontaneous
  Country: US (occurrence: US)
  Receive Date: 20130425
  Receipt Date: 20130808
  Transmission Date: 20140515
  Serious: Yes (Hospitalization, Other)
  Sender: FDA-Public Use
  Company Number: US-ASTRAZENECA-2013SE27581

PATIENT
  Sex: Female
  Weight: 89.8 kg

DRUGS (17)
  1. NEXIUM [Suspect]
     Indication: GASTROOESOPHAGEAL REFLUX DISEASE
     Route: 048
  2. NEXIUM [Suspect]
     Indication: GASTROOESOPHAGEAL REFLUX DISEASE
     Route: 048
     Dates: start: 20100202
  3. PRILOSEC [Suspect]
     Indication: GASTROOESOPHAGEAL REFLUX DISEASE
     Route: 048
  4. ZANTAC OTC [Concomitant]
     Indication: DYSPEPSIA
  5. PEPCID OTC [Concomitant]
     Indication: DYSPEPSIA
  6. LORAZEPAM [Concomitant]
  7. SYMBOLTA [Concomitant]
  8. CLONAZEPAM [Concomitant]
  9. AMBIEN [Concomitant]
     Route: 048
     Dates: start: 20120809, end: 20120809
  10. TIOTROPIUM [Concomitant]
     Route: 048
     Dates: start: 20120810
  11. POTASSIUM CHLORIDE [Concomitant]
     Route: 048
     Dates: start: 20120822
  12. NITRAZEPAM [Concomitant]
     Dates: start: 20120809
  13. MIRTAZAPINE [Concomitant]
     Route: 048
     Dates: start: 20120809
  14. METOPROLOL [Concomitant]
     Route: 048
     Dates: start: 20120809
  15. ACETAMINOPHEN [Concomitant]
     Route: 048
     Dates: start: 20120810
  16. PREDNISONE [Concomitant]
     Dosage: TAKE 2 TABLETS DAILY 3 TIMES DAYS
     Dates: start: 20100506
  17. ARIMIDEX [Concomitant]

REACTIONS (14)
  - Convulsion [Unknown]
  - Neoplasm malignant [Unknown]
  - Palpitations [Unknown]
  - Osteoporosis [Unknown]
  - Bone density decreased [Unknown]
  - Multiple fractures [Unknown]
  - Haematochezia [Unknown]
  - Cataract [Unknown]
  - Chronic obstructive pulmonary disease [Unknown]
  - Arthritis [Unknown]
  - Aortic disorder [Unknown]
  - Diabetes mellitus [Unknown]
  - Rheumatoid arthritis [Unknown]
  - Depression [Unknown]
